FAERS Safety Report 7358768-0 (Version None)
Quarter: 2011Q1

REPORT INFORMATION
  Report Type: 
  Country: None (occurrence: None)
  Receive Date: 20110317
  Receipt Date: 20110314
  Transmission Date: 20110831
  Serious: Yes (Hospitalization)
  Sender: FDA-Public Use
  Company Number: A0917900A

PATIENT
  Sex: Female

DRUGS (1)
  1. ADVAIR DISKUS 100/50 [Suspect]
     Route: 055

REACTIONS (4)
  - DEVICE MALFUNCTION [None]
  - UNDERDOSE [None]
  - ADVERSE EVENT [None]
  - PRODUCT QUALITY ISSUE [None]
